FAERS Safety Report 20964038 (Version 2)
Quarter: 2022Q4

REPORT INFORMATION
  Report Type: Spontaneous
  Country: JP (occurrence: JP)
  Receive Date: 20220615
  Receipt Date: 20221230
  Transmission Date: 20230113
  Serious: Yes (Hospitalization, Other)
  Sender: FDA-Public Use
  Company Number: JP-PFIZER INC-202200789718

PATIENT
  Age: 64 Year
  Sex: Male

DRUGS (1)
  1. METHOTREXATE SODIUM [Suspect]
     Active Substance: METHOTREXATE SODIUM
     Indication: Rheumatoid arthritis
     Dosage: 16 MG, WEEKLY

REACTIONS (2)
  - Lymphoproliferative disorder [Recovered/Resolved]
  - Epstein-Barr virus associated lymphoproliferative disorder [Recovered/Resolved]
